FAERS Safety Report 10399680 (Version 1)
Quarter: 2014Q3

REPORT INFORMATION
  Report Type: Spontaneous
  Country: US (occurrence: US)
  Receive Date: 20140821
  Receipt Date: 20140821
  Transmission Date: 20150326
  Serious: No
  Sender: FDA-Public Use
  Company Number: US-BAYER-2014-122808

PATIENT
  Age: 77 Year
  Sex: Female
  Weight: 45.35 kg

DRUGS (8)
  1. LISINOPRIL. [Concomitant]
     Active Substance: LISINOPRIL
  2. BAYER LOW DOSE [Suspect]
     Active Substance: ASPIRIN
     Indication: ISCHAEMIC HEART DISEASE PROPHYLAXIS
     Dosage: 1 DF, QD
     Route: 048
     Dates: start: 2013
  3. ALEVE [Suspect]
     Active Substance: NAPROXEN SODIUM
     Dosage: DF, PRN
     Route: 048
     Dates: start: 201402, end: 201402
  4. PLAQUENIL [Concomitant]
     Active Substance: HYDROXYCHLOROQUINE SULFATE
  5. CLONAZEPAM. [Concomitant]
     Active Substance: CLONAZEPAM
     Dosage: UNK
  6. ALEVE [Suspect]
     Active Substance: NAPROXEN SODIUM
     Dosage: DF, PRN
     Route: 048
     Dates: start: 201402, end: 201402
  7. CITRACAL [Concomitant]
     Active Substance: CALCIUM CITRATE
     Dosage: DF, UNK
  8. VITAMIN D [Concomitant]
     Active Substance: CHOLECALCIFEROL

REACTIONS (2)
  - Petechiae [Not Recovered/Not Resolved]
  - Rash [Not Recovered/Not Resolved]

NARRATIVE: CASE EVENT DATE: 201406
